FAERS Safety Report 25640083 (Version 1)
Quarter: 2025Q3

REPORT INFORMATION
  Report Type: Spontaneous
  Country: US (occurrence: US)
  Receive Date: 20250804
  Receipt Date: 20250804
  Transmission Date: 20251020
  Serious: No
  Sender: ROCHE
  Company Number: US-ROCHE-10000350991

PATIENT
  Age: 49 Year
  Sex: Female

DRUGS (12)
  1. RITUXIMAB [Suspect]
     Active Substance: RITUXIMAB
     Indication: Endocrine ophthalmopathy
     Route: 042
  2. RITUXIMAB [Suspect]
     Active Substance: RITUXIMAB
     Indication: Graves^ disease
  3. TEPROTUMUMAB-TRBW [Concomitant]
     Active Substance: TEPROTUMUMAB-TRBW
     Dosage: FOR SEVEN ADDITIONAL INFUSIONS
     Route: 042
  4. TEPROTUMUMAB-TRBW [Concomitant]
     Active Substance: TEPROTUMUMAB-TRBW
     Route: 042
  5. LEVOTHYROXINE [Concomitant]
     Active Substance: LEVOTHYROXINE
  6. LEVOTHYROXINE [Concomitant]
     Active Substance: LEVOTHYROXINE
  7. PENTOXIFYLLINE [Concomitant]
     Active Substance: PENTOXIFYLLINE
  8. SELENIUM [Concomitant]
     Active Substance: SELENIUM
  9. METOPROLOL [Concomitant]
     Active Substance: METOPROLOL
     Indication: Tachycardia
  10. PREGABALIN [Concomitant]
     Active Substance: PREGABALIN
     Indication: Pain
  11. DULOXETINE [Concomitant]
     Active Substance: DULOXETINE
     Indication: Pain
  12. TRIAMCINOLONE ACETONIDE [Concomitant]
     Active Substance: TRIAMCINOLONE ACETONIDE
     Indication: Thyroid dermatopathy
     Route: 061

REACTIONS (2)
  - Drug ineffective [Unknown]
  - No adverse event [Unknown]
